FAERS Safety Report 10430002 (Version 1)
Quarter: 2014Q3

REPORT INFORMATION
  Report Type: Spontaneous
  Country: SE (occurrence: SE)
  Receive Date: 20140904
  Receipt Date: 20140904
  Transmission Date: 20150326
  Serious: Yes (Other)
  Sender: FDA-Public Use
  Company Number: SE-009507513-1409SWE000735

PATIENT
  Age: 47 Year
  Sex: Female

DRUGS (1)
  1. NEXPLANON [Suspect]
     Active Substance: ETONOGESTREL
     Dosage: UNK
     Route: 059
     Dates: start: 20140619, end: 20140826

REACTIONS (2)
  - Breast operation [Unknown]
  - Breast cancer female [Unknown]

NARRATIVE: CASE EVENT DATE: 20140731
